FAERS Safety Report 9324390 (Version 1)
Quarter: 2013Q2

REPORT INFORMATION
  Report Type: Spontaneous
  Country: GB (occurrence: GB)
  Receive Date: 20130603
  Receipt Date: 20130603
  Transmission Date: 20140414
  Serious: Yes (Hospitalization, Other)
  Sender: FDA-Public Use
  Company Number: GB-TEVA-404709ISR

PATIENT
  Sex: Male

DRUGS (1)
  1. CIPROFLOXACIN MONOHYDROCHLORIDE [Suspect]
     Dosage: 1000 MILLIGRAM DAILY; 500 MG, BID
     Dates: start: 20130216, end: 20130307

REACTIONS (12)
  - Toxicity to various agents [Unknown]
  - Hospitalisation [Unknown]
  - Deafness unilateral [Not Recovered/Not Resolved]
  - Hearing impaired [Unknown]
  - Vasculitis [Unknown]
  - Headache [Unknown]
  - Balance disorder [Unknown]
  - Gait disturbance [Unknown]
  - Tinnitus [Unknown]
  - Photosensitivity reaction [Unknown]
  - Incorrect dose administered [Unknown]
  - Dizziness postural [Unknown]
